FAERS Safety Report 23828576 (Version 1)
Quarter: 2024Q2

REPORT INFORMATION
  Report Type: Spontaneous
  Country: US (occurrence: US)
  Receive Date: 20240508
  Receipt Date: 20240508
  Transmission Date: 20240716
  Serious: Yes (Other)
  Sender: FDA-Public Use
  Company Number: US-MankindUS-000136

PATIENT
  Sex: Female

DRUGS (1)
  1. OFLOXACIN [Suspect]
     Active Substance: OFLOXACIN
     Indication: Ear infection
     Dosage: STRENGTH: 0.3 %
     Dates: start: 20240118, end: 20240124

REACTIONS (5)
  - Ear haemorrhage [Recovering/Resolving]
  - Ear discomfort [Recovering/Resolving]
  - Deafness unilateral [Recovering/Resolving]
  - Product substitution issue [Unknown]
  - Drug hypersensitivity [Unknown]

NARRATIVE: CASE EVENT DATE: 20240121
